FAERS Safety Report 23459194 (Version 1)
Quarter: 2024Q1

REPORT INFORMATION
  Report Type: Report from Study
  Country: US (occurrence: US)
  Receive Date: 20240131
  Receipt Date: 20240131
  Transmission Date: 20240410
  Serious: Yes (Hospitalization)
  Sender: FDA-Public Use
  Company Number: US-GILEAD-2024-0660084

PATIENT
  Sex: Female

DRUGS (10)
  1. AZTREONAM LYSINE [Suspect]
     Active Substance: AZTREONAM LYSINE
     Indication: Cystic fibrosis
     Dosage: 1 ML, TID (28 DAYS ON FOLLOWED BY 28 DAYS OFF )
     Route: 055
  2. ARAVA [Concomitant]
     Active Substance: LEFLUNOMIDE
     Dosage: ARAVA 10 MG TABLET
  3. ALBUTEROL SULFATE [Concomitant]
     Active Substance: ALBUTEROL SULFATE
     Dosage: ALBUTEROL SULFATE 0.63MG/3ML VIAL-NEB
  4. ATROVENT [Concomitant]
     Active Substance: IPRATROPIUM BROMIDE
     Dosage: ATROVENT HFA 17MCG HFA AER AD
  5. VITAMIN D3 [Concomitant]
     Active Substance: CHOLECALCIFEROL
     Dosage: VITAMIN D3 10 MCG CAPSULE
  6. PLAQUENIL [Concomitant]
     Active Substance: HYDROXYCHLOROQUINE SULFATE
     Dosage: PLAQUENIL 200 MG TABLET
  7. MIACALCIN [Concomitant]
     Active Substance: CALCITONIN SALMON
     Dosage: MIACALCIN 200/ML VIAL
  8. FOSAMAX [Concomitant]
     Active Substance: ALENDRONATE SODIUM
     Dosage: FOSAMAX 70 MG TABLET
  9. SINGULAIR [Concomitant]
     Active Substance: MONTELUKAST SODIUM
     Dosage: SINGULAIR 10 MG TABLET
  10. CAL 600 +D [Concomitant]
     Dosage: CALCIUM + D3 600MG-12.5 TABLET ER

REACTIONS (1)
  - COVID-19 [Unknown]
